FAERS Safety Report 17310349 (Version 2)
Quarter: 2020Q2

REPORT INFORMATION
  Report Type: Spontaneous
  Country: US (occurrence: US)
  Receive Date: 20200123
  Receipt Date: 20200407
  Transmission Date: 20200713
  Serious: Yes (Other)
  Sender: FDA-Public Use
  Company Number: US-BAUSCH-BL-2020-001471

PATIENT
  Age: 65 Year
  Sex: Male
  Weight: 104.42 kg

DRUGS (2)
  1. DILTIAZEM HCL ER 180MG [Suspect]
     Active Substance: DILTIAZEM HYDROCHLORIDE
     Indication: ATRIAL FIBRILLATION
     Route: 048
     Dates: start: 201910
  2. DILTIAZEM HCL ER 180MG [Suspect]
     Active Substance: DILTIAZEM HYDROCHLORIDE
     Dosage: STARTED TWO WEEKS PRIOR FROM THE REPORT
     Route: 048
     Dates: end: 20200113

REACTIONS (5)
  - Blood pressure increased [Recovering/Resolving]
  - Product quality issue [Unknown]
  - Therapeutic product effect incomplete [Unknown]
  - Atrial fibrillation [Recovering/Resolving]
  - Heart rate increased [Recovering/Resolving]

NARRATIVE: CASE EVENT DATE: 2019
